FAERS Safety Report 5315224-9 (Version None)
Quarter: 2007Q2

REPORT INFORMATION
  Report Type: 
  Country: None (occurrence: None)
  Receive Date: 20070502
  Receipt Date: 20070426
  Transmission Date: 20071010
  Serious: Yes (Other)
  Sender: FDA-Public Use
  Company Number: PT-MERCK-0704PRT00006

PATIENT
  Age: 46 Year
  Sex: Male

DRUGS (1)
  1. VYTORIN [Suspect]
     Indication: HYPERCHOLESTEROLAEMIA
     Route: 048
     Dates: start: 20070401, end: 20070401

REACTIONS (2)
  - APHASIA [None]
  - LARYNGEAL OEDEMA [None]
